FAERS Safety Report 15674860 (Version 1)
Quarter: 2018Q4

REPORT INFORMATION
  Report Type: Spontaneous
  Country: US (occurrence: US)
  Receive Date: 20181129
  Receipt Date: 20181129
  Transmission Date: 20190205
  Serious: Yes (Life-Threatening)
  Sender: FDA-Public Use
  Company Number: None

PATIENT
  Age: 36 Year
  Sex: Female
  Weight: 86.18 kg

DRUGS (1)
  1. PARAGARD T 380A [Suspect]
     Active Substance: COPPER

REACTIONS (10)
  - Pain [None]
  - Migraine [None]
  - Complication associated with device [None]
  - Metal poisoning [None]
  - Headache [None]
  - Hypoaesthesia [None]
  - Muscular weakness [None]
  - Blood cholesterol increased [None]
  - Cardiac disorder [None]
  - Arteriosclerosis [None]

NARRATIVE: CASE EVENT DATE: 20181115
